FAERS Safety Report 19734640 (Version 3)
Quarter: 2021Q4

REPORT INFORMATION
  Report Type: Other
  Country: CN (occurrence: CN)
  Receive Date: 20210823
  Receipt Date: 20211005
  Transmission Date: 20220303
  Serious: Yes (Death)
  Sender: FDA-Public Use
  Company Number: CN-ROCHE-2895463

PATIENT
  Age: 75 Year
  Sex: Male

DRUGS (1)
  1. GAVRETO [Suspect]
     Active Substance: PRALSETINIB
     Indication: Product used for unknown indication
     Route: 048
     Dates: start: 20210708

REACTIONS (1)
  - Death [Fatal]

NARRATIVE: CASE EVENT DATE: 20210806
